FAERS Safety Report 14740757 (Version 2)
Quarter: 2018Q2

REPORT INFORMATION
  Report Type: Report from Study
  Country: DE (occurrence: DE)
  Receive Date: 20180410
  Receipt Date: 20180423
  Transmission Date: 20180711
  Serious: Yes (Death, Hospitalization, Other)
  Sender: FDA-Public Use
  Company Number: DE-JNJFOC-20180407612

PATIENT
  Age: 77 Year
  Sex: Male
  Weight: 90 kg

DRUGS (9)
  1. STELARA [Suspect]
     Active Substance: USTEKINUMAB
     Indication: PSORIASIS
     Dosage: 45.0 OT
     Route: 058
     Dates: start: 20140919, end: 20160408
  2. ACETYLSALICYLIC ACID [Concomitant]
     Active Substance: ASPIRIN
     Indication: PRODUCT USED FOR UNKNOWN INDICATION
     Route: 065
  3. HUMIRA [Suspect]
     Active Substance: ADALIMUMAB
     Indication: PSORIASIS
     Dosage: 40 OT
     Route: 058
     Dates: start: 20170517, end: 20171001
  4. COSENTYX [Suspect]
     Active Substance: SECUKINUMAB
     Indication: PSORIASIS
     Route: 065
     Dates: start: 20160408, end: 20160418
  5. RAMIPRIL. [Concomitant]
     Active Substance: RAMIPRIL
     Indication: PRODUCT USED FOR UNKNOWN INDICATION
     Route: 065
  6. LEVOTHYROXINE. [Concomitant]
     Active Substance: LEVOTHYROXINE
     Indication: PRODUCT USED FOR UNKNOWN INDICATION
     Route: 065
  7. SIMVASTATIN. [Concomitant]
     Active Substance: SIMVASTATIN
     Indication: PRODUCT USED FOR UNKNOWN INDICATION
     Route: 065
  8. BISOPROLOL [Concomitant]
     Active Substance: BISOPROLOL
     Indication: PRODUCT USED FOR UNKNOWN INDICATION
     Route: 065
  9. METFORMIN [Concomitant]
     Active Substance: METFORMIN HYDROCHLORIDE
     Indication: PRODUCT USED FOR UNKNOWN INDICATION
     Route: 065

REACTIONS (17)
  - Cerebrovascular accident [Unknown]
  - Onycholysis [Unknown]
  - Rheumatoid factor increased [Unknown]
  - Rash erythematous [Unknown]
  - Blood potassium increased [Unknown]
  - Lymphocyte count increased [Unknown]
  - Loss of consciousness [Fatal]
  - Cerebral infarction [Unknown]
  - Spinal pain [Unknown]
  - Red cell distribution width increased [Unknown]
  - Pruritus [Unknown]
  - Protein total increased [Unknown]
  - Monocyte count increased [Unknown]
  - Blood urea increased [Unknown]
  - Arthralgia [Unknown]
  - Skin plaque [Unknown]
  - Hyperkeratosis [Unknown]

NARRATIVE: CASE EVENT DATE: 201707
